FAERS Safety Report 5246129-X (Version None)
Quarter: 2007Q1

REPORT INFORMATION
  Report Type: 
  Country: None (occurrence: None)
  Receive Date: 20070220
  Receipt Date: 20061228
  Transmission Date: 20070707
  Serious: Yes (Disabling)
  Sender: FDA-Public Use
  Company Number: 230027M06FRA

PATIENT
  Age: 42 Year
  Sex: Male
  Weight: 70 kg

DRUGS (3)
  1. REBIF [Suspect]
     Indication: MULTIPLE SCLEROSIS
     Dosage: 44 MCG, 3 IN 1 WEEKS, SUBCUTANEOUS
     Route: 058
     Dates: start: 20010101
  2. ACETAMINOPHEN [Concomitant]
  3. PREDNISOLONE SODIUM SULFOBENZOATE [Concomitant]

REACTIONS (3)
  - ABDOMINAL WALL ABSCESS [None]
  - CALCINOSIS [None]
  - INJECTION SITE ABSCESS [None]
